FAERS Safety Report 10147187 (Version 2)
Quarter: 2014Q2

REPORT INFORMATION
  Report Type: Spontaneous
  Country: DK (occurrence: DK)
  Receive Date: 20140501
  Receipt Date: 20140506
  Transmission Date: 20141212
  Serious: Yes (Other)
  Sender: FDA-Public Use
  Company Number: CHPA2014DK005822

PATIENT
  Sex: Female

DRUGS (3)
  1. NICOTINELL GUM [Suspect]
     Indication: SMOKING CESSATION THERAPY
     Dosage: 2 MG, 12 PER DAY
     Route: 065
     Dates: start: 201401
  2. LAMICTAL [Concomitant]
     Indication: MOOD SWINGS
     Dosage: UNK
     Dates: start: 201110
  3. CYMBALTA [Concomitant]
     Indication: MOOD SWINGS
     Dosage: UNK
     Dates: start: 201110

REACTIONS (1)
  - Nicotine dependence [Not Recovered/Not Resolved]
